FAERS Safety Report 8236677-2 (Version None)
Quarter: 2012Q1

REPORT INFORMATION
  Report Type: 
  Country: None (occurrence: None)
  Receive Date: 20120326
  Receipt Date: 20120326
  Transmission Date: 20120608
  Serious: No
  Sender: FDA-Public Use
  Company Number: None

PATIENT
  Sex: Male
  Weight: 95.2554 kg

DRUGS (1)
  1. LANSOPRAZOLE [Suspect]
     Dosage: 30MG QD ORAL
     Route: 048
     Dates: start: 20120224, end: 20120228

REACTIONS (3)
  - VOMITING [None]
  - ABDOMINAL PAIN [None]
  - NAUSEA [None]
